FAERS Safety Report 17463454 (Version 2)
Quarter: 2020Q1

REPORT INFORMATION
  Report Type: Report from Study
  Country: US (occurrence: US)
  Receive Date: 20200226
  Receipt Date: 20200303
  Transmission Date: 20200409
  Serious: Yes (Hospitalization)
  Sender: FDA-Public Use
  Company Number: US-BAXTER-2020BAX004286

PATIENT
  Age: 17 Year
  Sex: Male
  Weight: 58.38 kg

DRUGS (14)
  1. DOXIL [Suspect]
     Active Substance: DOXORUBICIN HYDROCHLORIDE
     Dosage: DAY 8, LAST DOSE PRIOR TO SAE
     Route: 042
     Dates: start: 20200131, end: 20200131
  2. VINCRISTINE [Suspect]
     Active Substance: VINCRISTINE
     Indication: B PRECURSOR TYPE ACUTE LEUKAEMIA
     Dosage: DI DAYS 1, 8, 15, FIRST DOSE
     Route: 042
     Dates: start: 20200124
  3. INCB018424 [Suspect]
     Active Substance: RUXOLITINIB
     Dosage: DOSAGE FORM: TABLETS, LAST DOSE PRIOR TO SAE
     Route: 048
     Dates: start: 20200206, end: 20200206
  4. INCB018424 [Suspect]
     Active Substance: RUXOLITINIB
     Dosage: DOSAGE FORM: TABLETS, IM1D1-14, 29-42, FIRST DOSE
     Route: 048
  5. INCB018424 [Suspect]
     Active Substance: RUXOLITINIB
     Indication: B PRECURSOR TYPE ACUTE LEUKAEMIA
     Dosage: DOSAGE FORM: TABLETS, IM1D1-14, 29-42, FIRST DOSE
     Route: 048
     Dates: start: 20190802
  6. VINCRISTINE [Suspect]
     Active Substance: VINCRISTINE
     Dosage: LAST DOSE PRIOR TO SAE
     Route: 042
     Dates: start: 20200207, end: 20200207
  7. METHOTREXATE. [Suspect]
     Active Substance: METHOTREXATE
     Indication: B PRECURSOR TYPE ACUTE LEUKAEMIA
     Dosage: DI DAY 1, FIRST DOSE AND LAST DOSE PRIOR TO SAE
     Route: 037
     Dates: start: 20200124, end: 20200124
  8. PEGASPARGASE [Suspect]
     Active Substance: PEGASPARGASE
     Indication: B PRECURSOR TYPE ACUTE LEUKAEMIA
     Dosage: 3997.5 U DI DAY 4, IU/M2, FIRST DOSE AND LAST DOSE PRIOR TO SAE
     Route: 042
     Dates: start: 20200127, end: 20200127
  9. DOXIL [Suspect]
     Active Substance: DOXORUBICIN HYDROCHLORIDE
     Indication: B PRECURSOR TYPE ACUTE LEUKAEMIA
     Dosage: DI DAYS 1 FIRST DOSE
     Route: 042
     Dates: start: 20200124, end: 20200124
  10. INCB018424 [Suspect]
     Active Substance: RUXOLITINIB
     Dosage: DOSAGE FORM: TABLETS, CD1-14, 29-42, FIRST DOSE
     Route: 048
     Dates: start: 20191030
  11. DEXAMETHASONE. [Suspect]
     Active Substance: DEXAMETHASONE
     Indication: B PRECURSOR TYPE ACUTE LEUKAEMIA
     Dosage: DOSAGE FORM: TABLET, DI DAYS 1-7, 15-18, FIRST DOSE
     Route: 048
     Dates: start: 20200124
  12. CYCLOPHOSPHAMIDE FOR INJECTION, USP [Suspect]
     Active Substance: CYCLOPHOSPHAMIDE
     Indication: B PRECURSOR TYPE ACUTE LEUKAEMIA
     Dosage: CONSOLIDATION DAY 1, 29, FIRST DOSE
     Route: 042
     Dates: start: 20190802
  13. CYCLOPHOSPHAMIDE FOR INJECTION, USP [Suspect]
     Active Substance: CYCLOPHOSPHAMIDE
     Dosage: LAST DOSE PRIOR TO SAE
     Route: 042
     Dates: start: 20190913, end: 20190913
  14. DEXAMETHASONE. [Suspect]
     Active Substance: DEXAMETHASONE
     Dosage: DOSAGE FORM: TABLET, LAST DOSE PRIOR TO SAE
     Route: 048
     Dates: start: 20200207, end: 20200207

REACTIONS (1)
  - Cystitis haemorrhagic [Not Recovered/Not Resolved]

NARRATIVE: CASE EVENT DATE: 20200207
